FAERS Safety Report 24353905 (Version 1)
Quarter: 2024Q3

REPORT INFORMATION
  Report Type: Spontaneous
  Country: US (occurrence: None)
  Receive Date: 20240921
  Receipt Date: 20240921
  Transmission Date: 20241016
  Serious: No
  Sender: Public
  Company Number: None

PATIENT
  Sex: Female

DRUGS (1)
  1. BOTOX [Suspect]
     Active Substance: ONABOTULINUMTOXINA

REACTIONS (8)
  - Migraine [None]
  - Palpitations [None]
  - Dyspnoea [None]
  - Confusional state [None]
  - Dizziness [None]
  - Brain fog [None]
  - Dysphagia [None]
  - Blepharospasm [None]

NARRATIVE: CASE EVENT DATE: 20240916
